FAERS Safety Report 5477570-8 (Version None)
Quarter: 2007Q3

REPORT INFORMATION
  Report Type: 
  Country: None (occurrence: None)
  Receive Date: 20070925
  Receipt Date: 20070713
  Transmission Date: 20080115
  Serious: No
  Sender: FDA-Public Use
  Company Number: 2007US001630

PATIENT
  Age: 65 Year
  Sex: Male

DRUGS (7)
  1. VESICARE [Suspect]
     Indication: MICTURITION URGENCY
     Dosage: 5 MG, ORAL
     Route: 048
     Dates: start: 20070711
  2. LIPITOR [Concomitant]
  3. LISINOPRIL [Concomitant]
  4. TRIAMTERENE [Concomitant]
  5. HYDROCHLOROTHIAZIDE [Concomitant]
  6. ASPIRIN [Concomitant]
  7. GLIMEPIRIDE [Concomitant]

REACTIONS (2)
  - MUSCULAR WEAKNESS [None]
  - POSTURE ABNORMAL [None]
